FAERS Safety Report 11502286 (Version 1)
Quarter: 2015Q3

REPORT INFORMATION
  Report Type: Spontaneous
  Country: US (occurrence: US)
  Receive Date: 20150914
  Receipt Date: 20150914
  Transmission Date: 20151125
  Serious: No
  Sender: FDA-Public Use
  Company Number: US-ASTELLAS-2015US019490

PATIENT
  Age: 79 Year
  Sex: Male

DRUGS (2)
  1. XTANDI [Suspect]
     Active Substance: ENZALUTAMIDE
     Indication: PROSTATE CANCER
     Route: 048
     Dates: start: 20150114, end: 20150423
  2. XTANDI [Suspect]
     Active Substance: ENZALUTAMIDE
     Route: 048
     Dates: start: 20150424

REACTIONS (5)
  - Fatigue [Unknown]
  - Asthenia [Unknown]
  - Underdose [Unknown]
  - Hot flush [Unknown]
  - Prostatic specific antigen decreased [Unknown]

NARRATIVE: CASE EVENT DATE: 20150114
